FAERS Safety Report 4550777-X (Version None)
Quarter: 2004Q4

REPORT INFORMATION
  Report Type: 
  Country: None (occurrence: None)
  Receive Date: 20041217
  Receipt Date: 20040929
  Transmission Date: 20050328
  Serious: No
  Sender: FDA-Public Use
  Company Number: 2004-BP-09026BP(0)

PATIENT
  Age: 51 Year
  Sex: Female
  Weight: 59.4 kg

DRUGS (4)
  1. SPIRIVA [Suspect]
     Indication: CHRONIC OBSTRUCTIVE AIRWAYS DISEASE
     Dosage: 18 MCG (18 MCG, OD) IH
     Route: 055
     Dates: start: 20040710
  2. ADVAIR (SERETIDE MITE) [Concomitant]
  3. AMIODARONE [Concomitant]
  4. VERAPAMIL [Concomitant]

REACTIONS (4)
  - CONSTIPATION [None]
  - GENITAL PRURITUS FEMALE [None]
  - HAEMATURIA [None]
  - METRORRHAGIA [None]
